FAERS Safety Report 8535258-0 (Version None)
Quarter: 2012Q3

REPORT INFORMATION
  Report Type: 
  Country: None (occurrence: None)
  Receive Date: 20120725
  Receipt Date: 20120717
  Transmission Date: 20120928
  Serious: Yes (Hospitalization)
  Sender: FDA-Public Use
  Company Number: AU-009507513-1207AUS005510

PATIENT

DRUGS (3)
  1. VICTRELIS [Suspect]
     Indication: HEPATITIS C
     Dosage: UNK
     Dates: start: 20120101
  2. PEGATRON [Suspect]
     Indication: HEPATITIS C
     Dosage: UNK
     Dates: start: 20120430
  3. MIRTAZAPINE DP [Concomitant]
     Indication: DEPRESSION

REACTIONS (3)
  - DEHYDRATION [None]
  - HYPOTENSION [None]
  - MALAISE [None]
